FAERS Safety Report 17396989 (Version 2)
Quarter: 2020Q1

REPORT INFORMATION
  Report Type: Report from Study
  Country: RO (occurrence: RO)
  Receive Date: 20200210
  Receipt Date: 20200221
  Transmission Date: 20200409
  Serious: Yes (Hospitalization)
  Sender: FDA-Public Use
  Company Number: RO-CELGENEUS-ROU-20200200053

PATIENT
  Age: 68 Year
  Sex: Female
  Weight: 67.28 kg

DRUGS (2)
  1. AZACITIDINE. [Suspect]
     Active Substance: AZACITIDINE
     Indication: ACUTE MYELOID LEUKAEMIA
     Dosage: 125 MILLIGRAM
     Route: 041
     Dates: start: 20190417
  2. PF-04449913 [Suspect]
     Active Substance: GLASDEGIB
     Indication: ACUTE MYELOID LEUKAEMIA
     Route: 048
     Dates: start: 20190417

REACTIONS (1)
  - Glossitis [Recovered/Resolved]

NARRATIVE: CASE EVENT DATE: 20191030
